FAERS Safety Report 16704205 (Version 1)
Quarter: 2019Q3

REPORT INFORMATION
  Report Type: Spontaneous
  Country: NL (occurrence: NL)
  Receive Date: 20190814
  Receipt Date: 20190814
  Transmission Date: 20191004
  Serious: Yes (Hospitalization)
  Sender: FDA-Public Use
  Company Number: NL-TEVA-2019-NL-1091073

PATIENT
  Sex: Female
  Weight: 46 kg

DRUGS (10)
  1. OMEPRAZOL [Concomitant]
     Active Substance: OMEPRAZOLE
     Dosage: 1 X PER DAY 20MG
     Route: 065
  2. DEXTRAN 70/HYPROMELLOSE OOGDR 1/3MG/ML [Concomitant]
     Dosage: USE AS NECESSARY
     Route: 065
  3. CARBOMEER OOGGEL 2MG/G (CARBOMEER 980) [Concomitant]
     Dosage: USE AS NECESSARY
  4. TRAMADOL CAPSULE 50MG [Concomitant]
     Dosage: 2 X PER DAY IF REQUIRED
     Route: 065
  5. METHOTREXAAT TABLET, 10 MG (MILLIGRAM) [Suspect]
     Active Substance: METHOTREXATE
     Indication: RHEUMATOID ARTHRITIS
     Dosage: 1 X PER WEEK 25 MILLIGRAM
     Route: 065
     Dates: start: 20190618, end: 20190708
  6. FOLIUMZUUR TABLET 5MG [Concomitant]
     Active Substance: FOLIC ACID
     Dosage: 1DD5
     Route: 065
  7. PREDNISOLON TABLET  5MG [Concomitant]
     Active Substance: PREDNISOLONE
     Dosage: MORNING 10MG ^ SAVONDS
  8. HYDROXYCHLOROQUINE [Suspect]
     Active Substance: HYDROXYCHLOROQUINE
     Indication: PRODUCT USED FOR UNKNOWN INDICATION
     Dosage: 2DD 200 MG
     Route: 065
     Dates: start: 20170618
  9. DESLORATADINE TABLET 5MG [Concomitant]
     Dosage: 1 X PER DAY 5 MILLIGRAM
     Route: 065
  10. HYPROMELLOSE OOGDRUPPELS  3,2MG/ML [Concomitant]
     Dosage: USE AS NECESSARY
     Route: 065

REACTIONS (1)
  - Hepatitis [Recovering/Resolving]
